FAERS Safety Report 10143357 (Version 1)
Quarter: 2014Q2

REPORT INFORMATION
  Report Type: Spontaneous
  Country: US (occurrence: None)
  Receive Date: 20140429
  Receipt Date: 20140429
  Transmission Date: 20141212
  Serious: Yes (Hospitalization)
  Sender: FDA-Public Use
  Company Number: None

PATIENT
  Sex: Female

DRUGS (8)
  1. IMBRUVICA [Suspect]
     Indication: CHRONIC LYMPHOCYTIC LEUKAEMIA
     Route: 048
     Dates: start: 20140227
  2. ALLOPURINOL [Concomitant]
  3. AMLODIPINE [Concomitant]
  4. VALTREX [Concomitant]
  5. IRON [Concomitant]
  6. VITC [Concomitant]
  7. TIZANDINE [Concomitant]
  8. NEURONTIN [Concomitant]

REACTIONS (1)
  - Rash [None]
